FAERS Safety Report 14346628 (Version 7)
Quarter: 2018Q2

REPORT INFORMATION
  Report Type: Report from Study
  Country: US (occurrence: US)
  Receive Date: 20180103
  Receipt Date: 20180403
  Transmission Date: 20180711
  Serious: Yes (Hospitalization)
  Sender: FDA-Public Use
  Company Number: US-ACTELION-A-NJ2017-164797

PATIENT
  Age: 65 Year
  Sex: Female
  Weight: 45.35 kg

DRUGS (6)
  1. VELETRI [Suspect]
     Active Substance: EPOPROSTENOL
     Indication: PULMONARY ARTERIAL HYPERTENSION
     Dosage: 7 NG/KG, PER MIN
     Route: 042
     Dates: start: 20171216
  2. PREDNISONE. [Suspect]
     Active Substance: PREDNISONE
     Indication: NASAL ULCER
     Route: 065
  3. VELETRI [Suspect]
     Active Substance: EPOPROSTENOL
     Dosage: 8 NG/KG, PER MIN
     Route: 042
  4. SILDENAFIL. [Concomitant]
     Active Substance: SILDENAFIL
     Dosage: 20 MG, TID
     Dates: start: 20171213, end: 20171216
  5. SPIRONOLACTONE. [Suspect]
     Active Substance: SPIRONOLACTONE
     Indication: PRODUCT USED FOR UNKNOWN INDICATION
     Route: 065
  6. DILTIAZEM. [Concomitant]
     Active Substance: DILTIAZEM

REACTIONS (35)
  - Chromaturia [Unknown]
  - Feeling abnormal [Recovering/Resolving]
  - Haemorrhage [Unknown]
  - Nasal ulcer [Unknown]
  - Tension headache [Unknown]
  - Syncope [Unknown]
  - Catheter site haemorrhage [Unknown]
  - Blister [Unknown]
  - Dyspnoea [Recovering/Resolving]
  - Swelling [Unknown]
  - Dermatitis contact [Unknown]
  - Application site hypersensitivity [Unknown]
  - Myalgia [Unknown]
  - Musculoskeletal pain [Unknown]
  - Nasal discomfort [Unknown]
  - Photosensitivity reaction [Unknown]
  - Arthralgia [Unknown]
  - Pulmonary arterial hypertension [Unknown]
  - Asthenia [Unknown]
  - Skin burning sensation [Unknown]
  - Skin haemorrhage [Unknown]
  - Eye pain [Unknown]
  - Flushing [Recovered/Resolved]
  - Vomiting [Recovered/Resolved]
  - Pain in jaw [Not Recovered/Not Resolved]
  - Pain in extremity [Unknown]
  - Catheter site erythema [Unknown]
  - Nausea [Unknown]
  - Weight decreased [Unknown]
  - Headache [Recovering/Resolving]
  - Feeling cold [Unknown]
  - Diarrhoea [Unknown]
  - Gallbladder disorder [Unknown]
  - Catheter site related reaction [Unknown]
  - Back pain [Not Recovered/Not Resolved]

NARRATIVE: CASE EVENT DATE: 20171216
